FAERS Safety Report 20849779 (Version 1)
Quarter: 2022Q2

REPORT INFORMATION
  Report Type: Spontaneous
  Country: US (occurrence: US)
  Receive Date: 20220519
  Receipt Date: 20220519
  Transmission Date: 20220721
  Serious: Yes (Death, Hospitalization, Other)
  Sender: FDA-Public Use
  Company Number: US-TEVA-2022-US-2036765

PATIENT
  Age: 87 Year
  Sex: Male

DRUGS (3)
  1. WARFARIN SODIUM [Suspect]
     Active Substance: WARFARIN SODIUM
     Indication: Product used for unknown indication
     Route: 065
     Dates: start: 2014
  2. WARFARIN SODIUM [Suspect]
     Active Substance: WARFARIN SODIUM
     Route: 065
  3. WARFARIN SODIUM [Suspect]
     Active Substance: WARFARIN SODIUM
     Route: 065

REACTIONS (7)
  - Death [Fatal]
  - Illness [Unknown]
  - Toxicity to various agents [Unknown]
  - Haemorrhage [Unknown]
  - Limb injury [Unknown]
  - Dyspnoea [Unknown]
  - Mobility decreased [Unknown]
